FAERS Safety Report 9354841 (Version 1)
Quarter: 2013Q2

REPORT INFORMATION
  Report Type: Spontaneous
  Country: US (occurrence: None)
  Receive Date: 20130618
  Receipt Date: 20130618
  Transmission Date: 20140414
  Serious: Yes (Death, Life-Threatening, Hospitalization)
  Sender: FDA-Public Use
  Company Number: None

PATIENT
  Age: 81 Year
  Sex: Male
  Weight: 96.9 kg

DRUGS (2)
  1. WARFARIN [Suspect]
     Indication: ATRIAL FIBRILLATION
     Dosage: MG PO
     Dates: start: 20090101, end: 20130505
  2. WARFARIN [Suspect]
     Indication: DEEP VEIN THROMBOSIS
     Dosage: MG PO
     Dates: start: 20090101, end: 20130505

REACTIONS (37)
  - Urosepsis [None]
  - Staphylococcal sepsis [None]
  - Escherichia urinary tract infection [None]
  - Urinary tract infection enterococcal [None]
  - Klebsiella infection [None]
  - Urinary tract infection [None]
  - Fall [None]
  - Hemiparesis [None]
  - Decreased appetite [None]
  - Confusional state [None]
  - Arthralgia [None]
  - Incontinence [None]
  - Excoriation [None]
  - Leukocytosis [None]
  - Haemoglobin decreased [None]
  - International normalised ratio increased [None]
  - Atrial flutter [None]
  - Bundle branch block right [None]
  - Ventricular fibrillation [None]
  - Osteoarthritis [None]
  - Haemorrhage intracranial [None]
  - Coagulopathy [None]
  - Renal failure [None]
  - Fluid overload [None]
  - Tubulointerstitial nephritis [None]
  - Oxygen saturation decreased [None]
  - Respiratory arrest [None]
  - Pallor [None]
  - Unresponsive to stimuli [None]
  - Ventricular fibrillation [None]
  - Pulseless electrical activity [None]
  - Cardiac arrest [None]
  - Aspiration [None]
  - Metabolic acidosis [None]
  - Lactic acidosis [None]
  - Hypotension [None]
  - Haemorrhage [None]
